FAERS Safety Report 16573450 (Version 7)
Quarter: 2019Q3

REPORT INFORMATION
  Report Type: Spontaneous
  Country: US (occurrence: US)
  Receive Date: 20190715
  Receipt Date: 20190913
  Transmission Date: 20191004
  Serious: No
  Sender: FDA-Public Use
  Company Number: US-ACTELION-A-NJ2019-192858

PATIENT
  Age: 59 Year
  Sex: Female
  Weight: 63.49 kg

DRUGS (7)
  1. TRACLEER [Suspect]
     Active Substance: BOSENTAN
     Indication: PULMONARY ARTERIAL HYPERTENSION
     Dosage: 125 MG, BID
     Route: 048
  2. UPTRAVI [Suspect]
     Active Substance: SELEXIPAG
     Indication: PULMONARY ARTERIAL HYPERTENSION
     Dosage: 200 MCG, BID
     Route: 048
     Dates: start: 20190626
  3. XARELTO [Concomitant]
     Active Substance: RIVAROXABAN
  4. REVATIO [Concomitant]
     Active Substance: SILDENAFIL CITRATE
  5. UPTRAVI [Suspect]
     Active Substance: SELEXIPAG
     Dosage: 1000 MCG, BID
     Route: 048
  6. UPTRAVI [Suspect]
     Active Substance: SELEXIPAG
     Dosage: 1200 MCG, BID
     Route: 048
  7. TYVASO [Concomitant]
     Active Substance: TREPROSTINIL

REACTIONS (27)
  - Sinus disorder [Unknown]
  - Platelet disorder [Unknown]
  - Chills [Unknown]
  - Fatigue [Unknown]
  - Headache [Unknown]
  - Pain in jaw [Unknown]
  - Sinus congestion [Unknown]
  - Sinusitis [Unknown]
  - Chest discomfort [Unknown]
  - Abdominal pain upper [Unknown]
  - Abdominal discomfort [Unknown]
  - Upper-airway cough syndrome [Unknown]
  - Infection [Unknown]
  - Pain in extremity [Unknown]
  - Abdominal distension [Unknown]
  - Rash [Unknown]
  - Diarrhoea [Unknown]
  - Asthenia [Unknown]
  - Feeling abnormal [Unknown]
  - Tooth extraction [Unknown]
  - Arthralgia [Unknown]
  - Dyspnoea [Unknown]
  - Dizziness [Unknown]
  - Insomnia [Unknown]
  - Back pain [Unknown]
  - Pyrexia [Unknown]
  - Dental care [Unknown]

NARRATIVE: CASE EVENT DATE: 20190627
